FAERS Safety Report 7121842-8 (Version None)
Quarter: 2010Q4

REPORT INFORMATION
  Report Type: 
  Country: None (occurrence: None)
  Receive Date: 20101124
  Receipt Date: 20101115
  Transmission Date: 20110411
  Serious: Yes (Death, Other)
  Sender: FDA-Public Use
  Company Number: FR-ROCHE-739312

PATIENT
  Age: 55 Year
  Sex: Female

DRUGS (2)
  1. BEVACIZUMAB [Suspect]
     Dosage: 10 CYCLES
     Route: 065
  2. XELODA [Suspect]
     Dosage: 10 CYCLES
     Route: 065

REACTIONS (5)
  - BILE DUCT OBSTRUCTION [None]
  - DIASTOLIC HYPERTENSION [None]
  - LARGE INTESTINAL HAEMORRHAGE [None]
  - SEPTIC SHOCK [None]
  - SUBARACHNOID HAEMORRHAGE [None]
